FAERS Safety Report 13265765 (Version 1)
Quarter: 2017Q1

REPORT INFORMATION
  Report Type: Spontaneous
  Country: DK (occurrence: DK)
  Receive Date: 20170223
  Receipt Date: 20170223
  Transmission Date: 20170428
  Serious: Yes (Hospitalization)
  Sender: FDA-Public Use
  Company Number: PHHY2017DK023350

PATIENT
  Age: 82 Year
  Sex: Female

DRUGS (3)
  1. AMLODIPINE [Suspect]
     Active Substance: AMLODIPINE BESYLATE
     Indication: HYPERTENSION
     Dosage: DOSIS: 2 TABLETTER DAGLIGT, STYRKE: 5 MG
     Route: 048
     Dates: start: 201701
  2. LOSARSTAD COMP [Suspect]
     Active Substance: HYDROCHLOROTHIAZIDE\LOSARTAN POTASSIUM
     Indication: HYPERTENSION
     Dosage: STYRKE: 100+12,5 MG.
     Route: 048
     Dates: start: 201701
  3. CETIRIZIN TEVA [Concomitant]
     Indication: HYPERSENSITIVITY
     Route: 065

REACTIONS (3)
  - Dizziness [Unknown]
  - General physical health deterioration [Unknown]
  - Fall [Unknown]

NARRATIVE: CASE EVENT DATE: 20170123
